FAERS Safety Report 5583829-6 (Version None)
Quarter: 2008Q1

REPORT INFORMATION
  Report Type: 
  Country: None (occurrence: None)
  Receive Date: 20080108
  Receipt Date: 20080103
  Transmission Date: 20080703
  Serious: Yes (Other)
  Sender: FDA-Public Use
  Company Number: PHFR2008GB00451

PATIENT
  Age: 56 Year
  Sex: Male

DRUGS (1)
  1. ACLASTA [Suspect]
     Indication: OSTEITIS DEFORMANS
     Dosage: 5 MG
     Route: 042
     Dates: start: 20071121, end: 20071121

REACTIONS (7)
  - ABDOMINAL PAIN [None]
  - BONE PAIN [None]
  - DIARRHOEA [None]
  - HAEMATURIA [None]
  - HEADACHE [None]
  - MYALGIA [None]
  - NECK PAIN [None]
